FAERS Safety Report 5006993-6 (Version None)
Quarter: 2006Q2

REPORT INFORMATION
  Report Type: 
  Country: None (occurrence: None)
  Receive Date: 20060517
  Receipt Date: 20060509
  Transmission Date: 20061013
  Serious: Yes (Hospitalization, Other)
  Sender: FDA-Public Use
  Company Number: 2006057545

PATIENT
  Sex: Female

DRUGS (4)
  1. XANAX [Suspect]
     Indication: ILL-DEFINED DISORDER
     Dosage: 1 IN 1 D
  2. ZOLOFT [Suspect]
     Indication: DEPRESSION
  3. GEODON [Concomitant]
  4. ANTIDEPRESSANTS (ANTIDEPRESSANTS) [Concomitant]

REACTIONS (13)
  - AMNESIA [None]
  - CHANGE OF BOWEL HABIT [None]
  - COORDINATION ABNORMAL [None]
  - DEPRESSION [None]
  - DYSGEUSIA [None]
  - ERYTHEMA [None]
  - FALL [None]
  - FEELING COLD [None]
  - INTENTIONAL OVERDOSE [None]
  - LOSS OF CONSCIOUSNESS [None]
  - MUSCLE TWITCHING [None]
  - PARAESTHESIA [None]
  - SKIN DISCOLOURATION [None]
